FAERS Safety Report 10627604 (Version 3)
Quarter: 2015Q1

REPORT INFORMATION
  Report Type: Report from Study
  Country: DE (occurrence: DE)
  Receive Date: 20141205
  Receipt Date: 20150121
  Transmission Date: 20150720
  Serious: Yes (Hospitalization)
  Sender: FDA-Public Use
  Company Number: DE-ABBVIE-14K-062-1315403-00

PATIENT
  Sex: Male
  Weight: 47.5 kg

DRUGS (3)
  1. HUMIRA [Suspect]
     Active Substance: ADALIMUMAB
     Route: 058
     Dates: start: 20121116, end: 20121116
  2. HUMIRA [Suspect]
     Active Substance: ADALIMUMAB
     Indication: CROHN^S DISEASE
     Route: 058
     Dates: start: 20121102, end: 20121102
  3. HUMIRA [Suspect]
     Active Substance: ADALIMUMAB
     Route: 058
     Dates: start: 20130124, end: 20130313

REACTIONS (10)
  - Enterovesical fistula [Recovering/Resolving]
  - Device related infection [Unknown]
  - Weight decreased [Unknown]
  - Urinary tract infection enterococcal [Unknown]
  - Cachexia [Unknown]
  - Malnutrition [Unknown]
  - Ileal stenosis [Unknown]
  - Dehydration [Unknown]
  - General physical health deterioration [Recovered/Resolved]
  - Staphylococcal infection [Unknown]

NARRATIVE: CASE EVENT DATE: 20130313
